FAERS Safety Report 9668295 (Version 1)
Quarter: 2013Q4

REPORT INFORMATION
  Report Type: Spontaneous
  Country: US (occurrence: US)
  Receive Date: 20131104
  Receipt Date: 20131104
  Transmission Date: 20140711
  Serious: No
  Sender: FDA-Public Use
  Company Number: US-PFIZER INC-2013313639

PATIENT
  Sex: Male
  Weight: 95.24 kg

DRUGS (1)
  1. CHANTIX [Suspect]
     Indication: SMOKING CESSATION THERAPY
     Dosage: UNK

REACTIONS (4)
  - Abnormal dreams [Recovered/Resolved]
  - Mood swings [Recovered/Resolved]
  - Influenza [Recovering/Resolving]
  - Respiratory tract congestion [Recovering/Resolving]
